FAERS Safety Report 5851919-6 (Version None)
Quarter: 2008Q3

REPORT INFORMATION
  Report Type: 
  Country: None (occurrence: None)
  Receive Date: 20080820
  Receipt Date: 20080813
  Transmission Date: 20090109
  Serious: Yes (Other)
  Sender: FDA-Public Use
  Company Number: US-PFIZER INC-2008067853

PATIENT
  Sex: Male
  Weight: 109.09 kg

DRUGS (1)
  1. CADUET [Suspect]
     Indication: HYPERTENSION
     Dosage: TEXT:15/40MG
     Route: 048

REACTIONS (1)
  - BLOOD PRESSURE INCREASED [None]
